FAERS Safety Report 17820939 (Version 6)
Quarter: 2020Q3

REPORT INFORMATION
  Report Type: Report from Study
  Country: US (occurrence: US)
  Receive Date: 20200525
  Receipt Date: 20200923
  Transmission Date: 20201102
  Serious: No
  Sender: FDA-Public Use
  Company Number: NVSC2020US143406

PATIENT
  Age: 60 Year
  Sex: Male

DRUGS (7)
  1. FUROSEMIDE. [Suspect]
     Active Substance: FUROSEMIDE
     Indication: PRODUCT USED FOR UNKNOWN INDICATION
     Route: 065
  2. COREG [Suspect]
     Active Substance: CARVEDILOL
     Route: 048
  3. COREG [Suspect]
     Active Substance: CARVEDILOL
     Dosage: 6.125 MG
     Route: 048
  4. COREG [Suspect]
     Active Substance: CARVEDILOL
     Indication: PRODUCT USED FOR UNKNOWN INDICATION
     Dosage: 6.12 MG, BID
     Route: 048
  5. ENTRESTO [Suspect]
     Active Substance: SACUBITRIL\VALSARTAN
     Indication: CARDIAC FAILURE
     Dosage: 0.5 DF, BID (24/26)
     Route: 048
     Dates: start: 20200511
  6. ENTRESTO [Suspect]
     Active Substance: SACUBITRIL\VALSARTAN
     Dosage: 1 DF, UNK (49/51)
     Route: 048
  7. COREG [Suspect]
     Active Substance: CARVEDILOL
     Route: 048

REACTIONS (13)
  - Blood glucose decreased [Recovered/Resolved]
  - Dry mouth [Unknown]
  - Asthma [Unknown]
  - Nasopharyngitis [Unknown]
  - Abdominal distension [Recovered/Resolved]
  - Heart rate increased [Unknown]
  - Weight decreased [Unknown]
  - Heart rate decreased [Not Recovered/Not Resolved]
  - Cough [Unknown]
  - Malaise [Unknown]
  - Hypertension [Unknown]
  - Dizziness [Recovering/Resolving]
  - Hypersensitivity [Unknown]

NARRATIVE: CASE EVENT DATE: 20200511
